FAERS Safety Report 24604491 (Version 1)
Quarter: 2024Q4

REPORT INFORMATION
  Report Type: Spontaneous
  Country: US (occurrence: US)
  Receive Date: 20241111
  Receipt Date: 20241111
  Transmission Date: 20250115
  Serious: Yes (Other)
  Sender: ABBVIE
  Company Number: US-ABBVIE-5993585

PATIENT
  Age: 78 Year
  Sex: Female
  Weight: 107 kg

DRUGS (5)
  1. ESTRADIOL [Suspect]
     Active Substance: ESTRADIOL
     Indication: Vulvovaginal dryness
     Dosage: FREQUENCY TEXT: 3 TIMES A WEEK, FORM STRENGTH: 0.01%
     Route: 067
     Dates: start: 2022, end: 202410
  2. ASPIRIN [Concomitant]
     Active Substance: ASPIRIN
     Indication: Product used for unknown indication
  3. GABAPENTIN [Concomitant]
     Active Substance: GABAPENTIN
     Indication: Product used for unknown indication
  4. METOPROLOL TARTRATE [Concomitant]
     Active Substance: METOPROLOL TARTRATE
     Indication: Product used for unknown indication
  5. LOSARTAN [Concomitant]
     Active Substance: LOSARTAN
     Indication: Product used for unknown indication

REACTIONS (2)
  - Breast cancer female [Recovering/Resolving]
  - Breast disorder [Recovered/Resolved]

NARRATIVE: CASE EVENT DATE: 20230101
